FAERS Safety Report 4308983-5 (Version None)
Quarter: 2004Q1

REPORT INFORMATION
  Report Type: 
  Country: None (occurrence: None)
  Receive Date: 20040302
  Receipt Date: 20031210
  Transmission Date: 20041129
  Serious: Yes (Hospitalization)
  Sender: FDA-Public Use
  Company Number: DE-BRISTOL-MYERS SQUIBB COMPANY-12458261

PATIENT
  Age: 49 Year
  Sex: Male

DRUGS (1)
  1. BONOQ [Suspect]
     Indication: PROSTATITIS
     Route: 048

REACTIONS (7)
  - BLOOD GLUCOSE INCREASED [None]
  - BLOOD TRIGLYCERIDES INCREASED [None]
  - CIRCULATORY COLLAPSE [None]
  - CLOSTRIDIUM COLITIS [None]
  - GASTROINTESTINAL DISORDER [None]
  - PROTEIN TOTAL INCREASED [None]
  - RENAL CYST [None]
